FAERS Safety Report 22534528 (Version 2)
Quarter: 2023Q2

REPORT INFORMATION
  Report Type: Report from Study
  Country: BR (occurrence: BR)
  Receive Date: 20230608
  Receipt Date: 20230622
  Transmission Date: 20230721
  Serious: Yes (Other)
  Sender: FDA-Public Use
  Company Number: BR-JNJFOC-20230565110

PATIENT
  Age: 46 Year
  Sex: Female

DRUGS (3)
  1. SPRAVATO [Suspect]
     Active Substance: ESKETAMINE
     Indication: Major depression
     Dosage: 3 DEVICES
     Dates: start: 20230518
  2. SPRAVATO [Suspect]
     Active Substance: ESKETAMINE
     Dosage: 3 DEVICES
     Dates: start: 20230525
  3. SPRAVATO [Suspect]
     Active Substance: ESKETAMINE
     Dosage: 2 DEVICES

REACTIONS (4)
  - Blood pressure increased [Unknown]
  - Hyperglycaemia [Unknown]
  - Influenza [Unknown]
  - Off label use [Unknown]

NARRATIVE: CASE EVENT DATE: 20230501
